FAERS Safety Report 10418543 (Version 1)
Quarter: 2014Q3

REPORT INFORMATION
  Report Type: Spontaneous
  Country: US (occurrence: US)
  Receive Date: 20140829
  Receipt Date: 20140829
  Transmission Date: 20150326
  Serious: No
  Sender: FDA-Public Use
  Company Number: US-TARO-2014TAR00084

PATIENT
  Age: 69 Year
  Sex: Female
  Weight: 49.89 kg

DRUGS (4)
  1. CLOBETASOL PROPIONATE OINTMENT USP 0.05% [Suspect]
     Active Substance: CLOBETASOL PROPIONATE
     Indication: LICHEN SCLEROSUS
     Dosage: UNK UNK, 1X/DAY
     Route: 067
     Dates: start: 201405, end: 20140624
  2. UNSPECIFIED MINERALS [Concomitant]
  3. ESTRACE [Suspect]
     Active Substance: ESTRADIOL
     Indication: LICHEN SCLEROSUS
     Dosage: UNK
     Route: 067
     Dates: end: 2014
  4. UNSPECIFIED VITAMINS [Concomitant]

REACTIONS (3)
  - Off label use [Recovered/Resolved]
  - Application site pain [Recovering/Resolving]
  - Application site inflammation [Recovering/Resolving]

NARRATIVE: CASE EVENT DATE: 201405
